FAERS Safety Report 13643936 (Version 1)
Quarter: 2017Q2

REPORT INFORMATION
  Report Type: Spontaneous
  Country: FR (occurrence: FR)
  Receive Date: 20170612
  Receipt Date: 20170612
  Transmission Date: 20170830
  Serious: Yes (Other)
  Sender: FDA-Public Use
  Company Number: FR-BAYER-2017-108864

PATIENT
  Age: 35 Year
  Sex: Female

DRUGS (1)
  1. MIRENA [Suspect]
     Active Substance: LEVONORGESTREL
     Indication: CHEMICAL CONTRACEPTION
     Dosage: 20 MCG/24HR, CONT
     Route: 015
     Dates: start: 20090528, end: 20170512

REACTIONS (22)
  - Dry mouth [Recovering/Resolving]
  - Asthenia [Recovering/Resolving]
  - Myalgia [Recovering/Resolving]
  - Vulvovaginal dryness [Recovering/Resolving]
  - Rash [Recovering/Resolving]
  - Vertigo [Recovering/Resolving]
  - Headache [Recovering/Resolving]
  - Loss of libido [Recovering/Resolving]
  - Dyspnoea [Recovering/Resolving]
  - Constipation [Recovering/Resolving]
  - Alopecia [Recovering/Resolving]
  - Dysphagia [Recovering/Resolving]
  - Pruritus generalised [Recovering/Resolving]
  - Depression [Recovering/Resolving]
  - Nausea [Recovering/Resolving]
  - Decreased appetite [Recovering/Resolving]
  - Agoraphobia [Recovering/Resolving]
  - Weight fluctuation [Recovering/Resolving]
  - Tendonitis [Recovering/Resolving]
  - Eczema [Recovering/Resolving]
  - Vision blurred [Recovering/Resolving]
  - Breast cyst [Recovering/Resolving]

NARRATIVE: CASE EVENT DATE: 201304
